FAERS Safety Report 4635664-0 (Version None)
Quarter: 2005Q2

REPORT INFORMATION
  Report Type: 
  Country: None (occurrence: None)
  Receive Date: 20050413
  Receipt Date: 20050401
  Transmission Date: 20051028
  Serious: Yes (Other)
  Sender: FDA-Public Use
  Company Number: US-GDP-0511824

PATIENT
  Age: 10 Year
  Sex: Female

DRUGS (1)
  1. DIFFERIN [Suspect]
     Indication: ACNE
     Dosage: 1 APP QD TP
     Route: 061
     Dates: start: 20050201, end: 20050331

REACTIONS (2)
  - ERYTHEMA MULTIFORME [None]
  - TREATMENT NONCOMPLIANCE [None]
